FAERS Safety Report 24740948 (Version 1)
Quarter: 2024Q4

REPORT INFORMATION
  Report Type: Spontaneous
  Country: CA (occurrence: CA)
  Receive Date: 20241217
  Receipt Date: 20241217
  Transmission Date: 20250114
  Serious: Yes (Hospitalization)
  Sender: APOTEX
  Company Number: CA-APOTEX-2024AP018602

PATIENT
  Sex: Male

DRUGS (1)
  1. RISEDRONATE SODIUM [Suspect]
     Active Substance: RISEDRONATE SODIUM
     Indication: Osteoporosis
     Dosage: 1 DOSAGE FORM, Q.WK.
     Route: 048
     Dates: end: 202411

REACTIONS (2)
  - Gastritis [Unknown]
  - Oesophagitis [Recovered/Resolved]

NARRATIVE: CASE EVENT DATE: 20241101
